FAERS Safety Report 5374908-7 (Version None)
Quarter: 2007Q2

REPORT INFORMATION
  Report Type: 
  Country: None (occurrence: None)
  Receive Date: 20070627
  Receipt Date: 20070627
  Transmission Date: 20071010
  Serious: Yes (Life-Threatening, Hospitalization, Disabling)
  Sender: FDA-Public Use
  Company Number: None

PATIENT
  Age: 68 Year
  Sex: Female
  Weight: 62 kg

DRUGS (1)
  1. NOVOLOG [Suspect]
     Indication: HYPERGLYCAEMIA
     Dosage: SLIDING SCALE
     Dates: start: 20070602, end: 20070611

REACTIONS (3)
  - ATONIC SEIZURES [None]
  - CONVULSION [None]
  - HYPOGLYCAEMIA [None]
